FAERS Safety Report 8908750 (Version 2)
Quarter: 2013Q1

REPORT INFORMATION
  Report Type: Spontaneous
  Country: JP (occurrence: JP)
  Receive Date: 20121114
  Receipt Date: 20130131
  Transmission Date: 20140127
  Serious: Yes (Death)
  Sender: FDA-Public Use
  Company Number: JP-ELI_LILLY_AND_COMPANY-JP201211002581

PATIENT
  Age: 77 Year
  Sex: Female
  Weight: 36.3 kg

DRUGS (8)
  1. GEMZAR [Suspect]
     Indication: PANCREATIC CARCINOMA
     Dosage: 800 MG, UNK
     Route: 042
     Dates: start: 20120425, end: 20120425
  2. GEMZAR [Suspect]
     Dosage: 1200 MG, OTHER
     Route: 042
     Dates: start: 20120502, end: 20120816
  3. MAGMITT [Concomitant]
     Indication: CONSTIPATION PROPHYLAXIS
     Dosage: UNK, TID
     Dates: start: 20120419
  4. CALONAL [Concomitant]
     Indication: CANCER PAIN
     Dosage: 400 MG, TID
     Route: 048
     Dates: start: 20120418
  5. OXYCONTIN [Concomitant]
     Indication: CANCER PAIN
     Dosage: 5 MG, UNK
     Dates: start: 20120419
  6. PARIET [Concomitant]
     Dosage: 10 MG, QD
     Route: 048
     Dates: start: 20120503
  7. MEILAX [Concomitant]
     Indication: ANXIETY DISORDER
     Dosage: 1 MG, QD
     Route: 048
  8. LENDORMIN [Concomitant]
     Indication: ANXIETY DISORDER
     Dosage: 0.25 MG, QD
     Route: 048

REACTIONS (1)
  - Interstitial lung disease [Fatal]
